FAERS Safety Report 4737931-9 (Version None)
Quarter: 2005Q3

REPORT INFORMATION
  Report Type: 
  Country: None (occurrence: None)
  Receive Date: 20050805
  Receipt Date: 20050805
  Transmission Date: 20060218
  Serious: Yes (Other)
  Sender: FDA-Public Use
  Company Number: None

PATIENT

DRUGS (2)
  1. ZOCOR [Suspect]
     Dosage: 20 MG ONE DAILY
     Dates: start: 20050703, end: 20050711
  2. LIPITOR [Suspect]
     Dosage: 20 MG ONE DAILY
     Dates: start: 20050712, end: 20050719

REACTIONS (4)
  - ARTHRALGIA [None]
  - DYSPNOEA [None]
  - FATIGUE [None]
  - PAIN [None]
